FAERS Safety Report 8571053-4 (Version None)
Quarter: 2012Q3

REPORT INFORMATION
  Report Type: 
  Country: None (occurrence: None)
  Receive Date: 20120730
  Receipt Date: 20120730
  Transmission Date: 20120928
  Serious: Yes (Life-Threatening)
  Sender: FDA-Public Use
  Company Number: None

PATIENT
  Sex: Female
  Weight: 63.9572 kg

DRUGS (12)
  1. MULTI-VITAMIN [Concomitant]
  2. EVEROLIMUS 2.5 MG PO-NOVARTIS [Suspect]
     Indication: BREAST CANCER
     Dosage: 2.5 MG DAILY PO
     Route: 048
     Dates: start: 20120719, end: 20120726
  3. DILTIAZEM [Concomitant]
  4. PRINIVIL [Concomitant]
  5. ATIVAN [Concomitant]
  6. OXYCONTIN [Concomitant]
  7. SYNTHROID [Concomitant]
  8. OXYCODONE HCL [Concomitant]
  9. LANSOPRAZOLE [Concomitant]
  10. LAPATINIB [Suspect]
     Indication: BREAST CANCER
     Dosage: 1000 MG PO DAILY HS
     Route: 048
     Dates: start: 20120719, end: 20120726
  11. CALCIUM CARBONATE [Concomitant]
  12. COMPAZINE [Concomitant]

REACTIONS (4)
  - SUPRAVENTRICULAR TACHYCARDIA [None]
  - PLEURAL EFFUSION [None]
  - APPARENT LIFE THREATENING EVENT [None]
  - COUGH [None]
